FAERS Safety Report 18309412 (Version 1)
Quarter: 2020Q3

REPORT INFORMATION
  Report Type: Report from Study
  Country: US (occurrence: US)
  Receive Date: 20200925
  Receipt Date: 20200925
  Transmission Date: 20201103
  Serious: Yes (Hospitalization, Other)
  Sender: FDA-Public Use
  Company Number: US-GILEAD-2020-0495949

PATIENT
  Age: 74 Year
  Sex: Female

DRUGS (9)
  1. BREO ELLIPTA [Concomitant]
     Active Substance: FLUTICASONE FUROATE\VILANTEROL TRIFENATATE
  2. AMBRISENTAN [Suspect]
     Active Substance: AMBRISENTAN
     Indication: PULMONARY ARTERIAL HYPERTENSION
     Dosage: 5 MG, QD
     Route: 065
     Dates: start: 20200205
  3. TORSEMIDE. [Concomitant]
     Active Substance: TORSEMIDE
  4. SPIRIVA [Concomitant]
     Active Substance: TIOTROPIUM BROMIDE MONOHYDRATE
  5. POTASSIUM CHLORIDE. [Concomitant]
     Active Substance: POTASSIUM CHLORIDE
  6. URSODIOL. [Concomitant]
     Active Substance: URSODIOL
  7. DESOXIMETAS [Concomitant]
  8. SPIRONOLACTON [Concomitant]
     Active Substance: SPIRONOLACTONE
  9. IRON INFUSION [Concomitant]
     Active Substance: IRON

REACTIONS (2)
  - Intestinal haemorrhage [Not Recovered/Not Resolved]
  - Blood iron abnormal [Unknown]

NARRATIVE: CASE EVENT DATE: 20200812
